FAERS Safety Report 25655048 (Version 1)
Quarter: 2025Q3

REPORT INFORMATION
  Report Type: Spontaneous
  Country: EU (occurrence: EU)
  Receive Date: 20250807
  Receipt Date: 20250807
  Transmission Date: 20251020
  Serious: Yes (Hospitalization)
  Sender: PFIZER
  Company Number: None

PATIENT
  Age: 81 Year
  Sex: Male
  Weight: 70 kg

DRUGS (4)
  1. RITUXIMAB [Suspect]
     Active Substance: RITUXIMAB
     Indication: Marginal zone lymphoma
     Dosage: 1 DF, 1X/DAY, CYCLE 1
     Route: 042
     Dates: start: 20250618, end: 20250618
  2. RITUXIMAB [Suspect]
     Active Substance: RITUXIMAB
     Dosage: 1 DF, 1X/DAY, CYCLE 2
     Route: 042
     Dates: start: 20250716, end: 20250716
  3. BENDAMUSTINE HYDROCHLORIDE [Suspect]
     Active Substance: BENDAMUSTINE HYDROCHLORIDE
     Indication: Marginal zone lymphoma
     Dosage: 1 DF, 1X/DAY, CYCLE 1
     Route: 042
     Dates: start: 20250618, end: 20250619
  4. BENDAMUSTINE HYDROCHLORIDE [Suspect]
     Active Substance: BENDAMUSTINE HYDROCHLORIDE
     Dosage: 1 DF, 1X/DAY, CYCLE 2
     Route: 042
     Dates: start: 20250716, end: 20250716

REACTIONS (1)
  - Myocarditis [Recovering/Resolving]

NARRATIVE: CASE EVENT DATE: 20250717
